FAERS Safety Report 16542729 (Version 3)
Quarter: 2019Q3

REPORT INFORMATION
  Report Type: Report from Study
  Country: US (occurrence: US)
  Receive Date: 20190709
  Receipt Date: 20190830
  Transmission Date: 20191004
  Serious: Yes (Hospitalization, Other)
  Sender: FDA-Public Use
  Company Number: US-ROCHE-2346286

PATIENT
  Age: 50 Year
  Sex: Male
  Weight: 86.26 kg

DRUGS (3)
  1. INSULIN [Concomitant]
     Active Substance: INSULIN NOS
     Indication: TYPE 1 DIABETES MELLITUS
     Dosage: ONGOING: YES
     Route: 065
  2. OCREVUS [Suspect]
     Active Substance: OCRELIZUMAB
     Indication: RELAPSING-REMITTING MULTIPLE SCLEROSIS
     Dosage: ONGOING; UNKNOWN
     Route: 042
     Dates: start: 20181012, end: 20181026
  3. FLOMAX [Concomitant]
     Active Substance: TAMSULOSIN HYDROCHLORIDE
     Dosage: 2 CAPSULES TWICE DAILY
     Route: 048

REACTIONS (7)
  - Scab [Unknown]
  - Multiple sclerosis relapse [Unknown]
  - Gait inability [Not Recovered/Not Resolved]
  - Ear infection [Recovered/Resolved]
  - Cystitis [Recovering/Resolving]
  - Oral infection [Recovered/Resolved]
  - Urinary tract infection [Recovered/Resolved]

NARRATIVE: CASE EVENT DATE: 201811
